FAERS Safety Report 21903640 (Version 1)
Quarter: 2023Q1

REPORT INFORMATION
  Report Type: Spontaneous
  Country: US (occurrence: None)
  Receive Date: 20230123
  Receipt Date: 20230123
  Transmission Date: 20230418
  Serious: Yes (Death)
  Sender: FDA-Public Use
  Company Number: None

PATIENT
  Age: 90 Year
  Sex: Female
  Weight: 64.8 kg

DRUGS (9)
  1. REVLIMID [Suspect]
     Active Substance: LENALIDOMIDE
     Indication: B-cell lymphoma
     Dosage: FREQUENCY : DAILY;?
     Route: 048
     Dates: start: 20211103, end: 20230120
  2. ALLOPURINOL [Concomitant]
  3. Aspirin [Concomitant]
  4. ATENOLOL [Concomitant]
  5. DONEPEZIL [Concomitant]
     Active Substance: DONEPEZIL
  6. FUROSEMIDE [Concomitant]
  7. lantus U-100 [Concomitant]
  8. ONDANSETRON [Concomitant]
     Active Substance: ONDANSETRON
  9. SPIRONOLACTONE [Concomitant]
     Active Substance: SPIRONOLACTONE

REACTIONS (1)
  - Death [None]

NARRATIVE: CASE EVENT DATE: 20230120
